FAERS Safety Report 17930172 (Version 2)
Quarter: 2020Q3

REPORT INFORMATION
  Report Type: Report from Study
  Country: BE (occurrence: BE)
  Receive Date: 20200623
  Receipt Date: 20200623
  Transmission Date: 20201105
  Serious: Yes (Death)
  Sender: FDA-Public Use
  Company Number: BE-PFIZER INC-2020232516

PATIENT
  Age: 83 Year
  Sex: Male
  Weight: 93 kg

DRUGS (6)
  1. PANTOPRAZOLE EG [Concomitant]
     Active Substance: PANTOPRAZOLE SODIUM
     Indication: PROPHYLAXIS
     Dosage: 20 MG, 1X/DAY
     Route: 048
     Dates: start: 201711
  2. TALAZOPARIB. [Suspect]
     Active Substance: TALAZOPARIB
     Dosage: UNK
  3. LYSOMUCIL [Concomitant]
     Active Substance: ACETYLCYSTEINE
     Indication: PRODUCTIVE COUGH
     Dosage: 600 MG, 2X/DAY
     Route: 048
     Dates: start: 20200312
  4. ENZALUTAMIDE [Suspect]
     Active Substance: ENZALUTAMIDE
     Indication: HORMONE-REFRACTORY PROSTATE CANCER
     Dosage: 160 MG, 1X/DAY
     Route: 048
     Dates: start: 20191015, end: 20200613
  5. D?CURE [Concomitant]
     Active Substance: CHOLECALCIFEROL
     Indication: PROPHYLAXIS
     Dosage: 25000 EQ, MONTHLY
     Route: 048
     Dates: start: 20180301
  6. TALAZOPARIB. [Suspect]
     Active Substance: TALAZOPARIB
     Indication: HORMONE-REFRACTORY PROSTATE CANCER
     Dosage: UNK
     Route: 048
     Dates: start: 20190121, end: 20200613

REACTIONS (1)
  - Cardiac arrest [Fatal]

NARRATIVE: CASE EVENT DATE: 20200613
